FAERS Safety Report 15484295 (Version 2)
Quarter: 2018Q4

REPORT INFORMATION
  Report Type: Report from Study
  Country: None (occurrence: DE)
  Receive Date: 20181010
  Receipt Date: 20181109
  Transmission Date: 20190205
  Serious: Yes (Life-Threatening, Hospitalization, Other)
  Sender: FDA-Public Use
  Company Number: DE-ABBVIE-18K-062-2512863-00

PATIENT
  Sex: Male
  Weight: 93 kg

DRUGS (6)
  1. OTEZLA [Concomitant]
     Active Substance: APREMILAST
     Indication: PSORIASIS
     Route: 048
     Dates: start: 20170425
  2. ATACAND PLUS [Concomitant]
     Active Substance: CANDESARTAN CILEXETIL\HYDROCHLOROTHIAZIDE
     Indication: HYPERTENSION
     Route: 046
     Dates: start: 201107
  3. ASPIRIN. [Concomitant]
     Active Substance: ASPIRIN
     Indication: PRODUCT USED FOR UNKNOWN INDICATION
     Route: 048
     Dates: start: 20101007
  4. METOPROLOL. [Concomitant]
     Active Substance: METOPROLOL
     Indication: HYPERTENSION
     Route: 048
     Dates: start: 20101007
  5. HUMIRA [Suspect]
     Active Substance: ADALIMUMAB
     Indication: PSORIASIS
     Route: 058
     Dates: start: 20080930, end: 201704
  6. ALLOPURINOL. [Concomitant]
     Active Substance: ALLOPURINOL
     Indication: PRODUCT USED FOR UNKNOWN INDICATION
     Route: 048
     Dates: start: 2012

REACTIONS (11)
  - Prostate cancer [Recovered/Resolved with Sequelae]
  - Diverticulum [Unknown]
  - Myocardial infarction [Recovered/Resolved]
  - Cholelithiasis [Recovered/Resolved]
  - Metastases to lymph nodes [Not Recovered/Not Resolved]
  - Superinfection [Recovered/Resolved]
  - Sepsis [Recovered/Resolved]
  - Haemorrhoids [Unknown]
  - Myocardial infarction [Unknown]
  - Fatigue [Unknown]
  - Colon adenoma [Unknown]

NARRATIVE: CASE EVENT DATE: 2010
